FAERS Safety Report 10827397 (Version 4)
Quarter: 2016Q1

REPORT INFORMATION
  Report Type: Report from Study
  Country: US (occurrence: US)
  Receive Date: 20150219
  Receipt Date: 20160328
  Transmission Date: 20160525
  Serious: Yes (Hospitalization, Other)
  Sender: FDA-Public Use
  Company Number: US-AMGEN-USASP2015015226

PATIENT
  Age: 62 Year
  Sex: Male

DRUGS (1)
  1. ENBREL [Suspect]
     Active Substance: ETANERCEPT
     Indication: RHEUMATOID ARTHRITIS
     Dosage: 50 MG, QWK
     Route: 065
     Dates: start: 200912

REACTIONS (12)
  - Fall [Recovered/Resolved]
  - Grip strength decreased [Not Recovered/Not Resolved]
  - Knee arthroplasty [Unknown]
  - Musculoskeletal pain [Not Recovered/Not Resolved]
  - Back pain [Not Recovered/Not Resolved]
  - Cough [Not Recovered/Not Resolved]
  - Arthralgia [Not Recovered/Not Resolved]
  - Laboratory test abnormal [Unknown]
  - Syncope [Recovered/Resolved]
  - Pain in extremity [Not Recovered/Not Resolved]
  - Nasal congestion [Not Recovered/Not Resolved]
  - Injection site irritation [Unknown]

NARRATIVE: CASE EVENT DATE: 201206
